FAERS Safety Report 7657207-X (Version None)
Quarter: 2011Q3

REPORT INFORMATION
  Report Type: 
  Country: None (occurrence: None)
  Receive Date: 20110804
  Receipt Date: 20110802
  Transmission Date: 20111222
  Serious: Yes (Death, Hospitalization)
  Sender: FDA-Public Use
  Company Number: AT-GENZYME-CAMP-1001210

PATIENT
  Sex: Female
  Weight: 50 kg

DRUGS (1)
  1. CAMPATH [Suspect]
     Indication: CHRONIC LYMPHOCYTIC LEUKAEMIA
     Dosage: 10 MG, 3X/W
     Route: 058
     Dates: start: 20100730, end: 20101001

REACTIONS (3)
  - PLEURAL EFFUSION [None]
  - TENDONITIS [None]
  - DEATH [None]
